FAERS Safety Report 14103068 (Version 4)
Quarter: 2018Q1

REPORT INFORMATION
  Report Type: Report from Study
  Country: BR (occurrence: BR)
  Receive Date: 20171018
  Receipt Date: 20180207
  Transmission Date: 20180508
  Serious: Yes (Other)
  Sender: FDA-Public Use
  Company Number: BR-UCBSA-2017015432

PATIENT
  Age: 26 Year
  Sex: Female
  Weight: 73 kg

DRUGS (6)
  1. UTROGESTAN [Concomitant]
     Active Substance: PROGESTERONE
     Dosage: 200 MG, ONCE DAILY (QD)
     Route: 067
     Dates: start: 20171011
  2. NORIPURUM [Concomitant]
     Active Substance: IRON POLYMALTOSE
     Indication: ANAEMIA
     Dosage: UNK, ONCE DAILY (QD)
     Route: 048
     Dates: start: 20171011
  3. MESALAZINA [Concomitant]
     Active Substance: MESALAMINE
     Indication: CROHN^S DISEASE
     Dosage: 800 MG, 2X/DAY (BID)
     Route: 048
     Dates: start: 2016, end: 201704
  4. CEPHALEXIN. [Concomitant]
     Active Substance: CEPHALEXIN
     Indication: URINARY TRACT INFECTION
     Dosage: 500 MG, 4X/DAY (QID)
     Route: 048
     Dates: start: 20170920, end: 20170927
  5. UTROGESTAN [Concomitant]
     Active Substance: PROGESTERONE
     Indication: VAGINAL HAEMORRHAGE
     Dosage: 200 MG, ONCE DAILY (QD)
     Route: 067
     Dates: start: 2017
  6. CERTOLIZUMAB PEGOL [Suspect]
     Active Substance: CERTOLIZUMAB PEGOL
     Indication: CROHN^S DISEASE
     Dosage: 400 MG, MONTHLY (QM)
     Dates: start: 201703

REACTIONS (8)
  - Crohn^s disease [Not Recovered/Not Resolved]
  - Abortion spontaneous [Recovered/Resolved]
  - Placenta praevia [Recovered/Resolved]
  - Pregnancy [Unknown]
  - Vaginal haemorrhage [Recovered/Resolved]
  - Urinary tract infection [Recovered/Resolved]
  - Anaemia [Not Recovered/Not Resolved]
  - Injection site swelling [Recovering/Resolving]

NARRATIVE: CASE EVENT DATE: 2017
